FAERS Safety Report 6225798-1 (Version None)
Quarter: 2009Q2

REPORT INFORMATION
  Report Type: 
  Country: None (occurrence: None)
  Receive Date: 20090612
  Receipt Date: 20090428
  Transmission Date: 20091009
  Serious: No
  Sender: FDA-Public Use
  Company Number: US-ABBOTT-09P-163-0569943-00

PATIENT
  Sex: Female
  Weight: 69.916 kg

DRUGS (8)
  1. HUMIRA [Suspect]
     Indication: CROHN'S DISEASE
     Route: 058
     Dates: start: 20071125
  2. IMODIUM [Concomitant]
     Indication: CROHN'S DISEASE
     Route: 048
  3. ALBUTEROL [Concomitant]
     Indication: ASTHMA
     Route: 055
  4. DIOVAN [Concomitant]
     Indication: HYPERTENSION
     Route: 048
  5. HYDROCHLOROTHIAZIDE [Concomitant]
     Indication: HYPERTENSION
     Route: 048
  6. ESTRATEST [Concomitant]
     Indication: HORMONE REPLACEMENT THERAPY
  7. VIT B12 [Concomitant]
     Indication: VITAMIN SUPPLEMENTATION
  8. MULTI-VITAMIN [Concomitant]
     Indication: VITAMIN SUPPLEMENTATION

REACTIONS (3)
  - ABDOMINAL DISTENSION [None]
  - BRONCHITIS [None]
  - COUGH [None]
